FAERS Safety Report 4883833-7 (Version None)
Quarter: 2006Q1

REPORT INFORMATION
  Report Type: 
  Country: None (occurrence: None)
  Receive Date: 20060113
  Receipt Date: 20060105
  Transmission Date: 20060701
  Serious: Yes (Disabling)
  Sender: FDA-Public Use
  Company Number: 2006-01-0289

PATIENT
  Sex: Male

DRUGS (2)
  1. PEG-INTRON [Suspect]
     Indication: HEPATITIS B
     Dosage: 120 MCG QWK
     Dates: start: 20021001, end: 20040501
  2. EPIVIR [Suspect]
     Indication: HEPATITIS B
     Dosage: 100 MG QD ORAL
     Route: 048

REACTIONS (6)
  - ARTHRITIS [None]
  - DEPRESSION [None]
  - IMMUNE SYSTEM DISORDER [None]
  - IMPAIRED HEALING [None]
  - MALAISE [None]
  - NAUSEA [None]
